FAERS Safety Report 8209973-2 (Version None)
Quarter: 2012Q1

REPORT INFORMATION
  Report Type: 
  Country: None (occurrence: None)
  Receive Date: 20120314
  Receipt Date: 20110401
  Transmission Date: 20120608
  Serious: No
  Sender: FDA-Public Use
  Company Number: US-ASTRAZENECA-2007UW25683

PATIENT
  Age: 72 Year
  Sex: Male
  Weight: 77.6 kg

DRUGS (4)
  1. PROCARDIA [Concomitant]
  2. TOPROL-XL [Suspect]
     Route: 048
  3. METOPROLOL SUCCINATE [Suspect]
  4. TOPROL-XL [Suspect]
     Indication: HYPERTENSION
     Route: 048

REACTIONS (5)
  - MIDDLE INSOMNIA [None]
  - HEADACHE [None]
  - DRUG INTOLERANCE [None]
  - ABNORMAL DREAMS [None]
  - NIGHTMARE [None]
